FAERS Safety Report 7782984-7 (Version None)
Quarter: 2011Q3

REPORT INFORMATION
  Report Type: 
  Country: None (occurrence: None)
  Receive Date: 20110928
  Receipt Date: 20110914
  Transmission Date: 20111222
  Serious: Yes (Hospitalization, Other)
  Sender: FDA-Public Use
  Company Number: US-KINGPHARMUSA00001-K201101089

PATIENT
  Sex: Female
  Weight: 80.726 kg

DRUGS (2)
  1. SKELAXIN [Suspect]
     Indication: MUSCLE SPASMS
     Dosage: UNK
     Dates: start: 20030101, end: 20060101
  2. SKELAXIN [Suspect]
     Dosage: UNK
     Route: 048
     Dates: start: 20060101, end: 20110912

REACTIONS (4)
  - MUSCULOSKELETAL STIFFNESS [None]
  - MUSCLE SPASMS [None]
  - CARDIAC DISCOMFORT [None]
  - MULTIPLE SCLEROSIS [None]
